FAERS Safety Report 26035350 (Version 2)
Quarter: 2025Q4

REPORT INFORMATION
  Report Type: Report from Study
  Country: EU (occurrence: EU)
  Receive Date: 20251112
  Receipt Date: 20251205
  Transmission Date: 20260118
  Serious: Yes (Other)
  Sender: ROCHE
  Company Number: EU-ROCHE-10000259933

PATIENT
  Age: 57 Year
  Sex: Male

DRUGS (28)
  1. MOSUNETUZUMAB [Suspect]
     Active Substance: MOSUNETUZUMAB
     Indication: Follicular lymphoma
     Dosage: MOST RECENT DOSE : 22-OCT-24?MOST RECENT DOSE : 09-JAN-2025
     Route: 042
     Dates: start: 20240411
  2. MOSUNETUZUMAB [Suspect]
     Active Substance: MOSUNETUZUMAB
     Dosage: MOST RECENT DOSE : 22-OCT-24?MOST RECENT DOSE : 09-JAN-2025
     Route: 042
  3. BACTRIM [Concomitant]
     Active Substance: SULFAMETHOXAZOLE\TRIMETHOPRIM
     Indication: Antibiotic prophylaxis
     Dosage: OTHER
     Route: 048
     Dates: start: 20240323
  4. ACYCLOVIR [Concomitant]
     Active Substance: ACYCLOVIR
     Indication: Antiviral prophylaxis
     Route: 048
     Dates: start: 20220323
  5. ALLOPURINOL [Concomitant]
     Active Substance: ALLOPURINOL
     Indication: Prophylaxis
     Route: 048
     Dates: start: 20240419
  6. CARDURA [Concomitant]
     Active Substance: DOXAZOSIN MESYLATE
     Indication: Hypertension
     Route: 048
     Dates: start: 20240419
  7. ESIDREX [Concomitant]
     Active Substance: HYDROCHLOROTHIAZIDE
     Indication: Hypertension
     Route: 048
     Dates: start: 20240419
  8. LYRICA [Concomitant]
     Active Substance: PREGABALIN
     Indication: Polyneuropathy
     Route: 048
     Dates: start: 20230310
  9. ATORVASTATIN [Concomitant]
     Active Substance: ATORVASTATIN
     Indication: Hypertension
     Route: 048
     Dates: start: 20240419
  10. OMEGA-3 FATTY ACIDS [Concomitant]
     Active Substance: OMEGA-3 FATTY ACIDS
     Indication: Prophylaxis
     Route: 048
     Dates: start: 20240419
  11. POSACONAZOLE [Concomitant]
     Active Substance: POSACONAZOLE
     Indication: Prophylaxis
     Route: 048
     Dates: start: 20240419
  12. ARIXTRA [Concomitant]
     Active Substance: FONDAPARINUX SODIUM
     Indication: Thrombosis prophylaxis
     Route: 058
     Dates: start: 20240419
  13. OMEPRAZOLE [Concomitant]
     Active Substance: OMEPRAZOLE
     Route: 048
     Dates: start: 20240508
  14. POTASSIUM CHLORIDE [Concomitant]
     Active Substance: POTASSIUM CHLORIDE
     Indication: Hypokalaemia
     Route: 048
     Dates: start: 20240508, end: 20240811
  15. POTASSIUM CHLORIDE [Concomitant]
     Active Substance: POTASSIUM CHLORIDE
     Route: 048
     Dates: start: 20240812
  16. DEURSIL [Concomitant]
     Active Substance: URSODIOL
     Route: 048
     Dates: start: 20240419
  17. AMLODIPINE\INDAPAMIDE\PERINDOPRIL [Concomitant]
     Active Substance: AMLODIPINE\INDAPAMIDE\PERINDOPRIL
     Route: 048
     Dates: start: 20240530
  18. MOMETASONE FUROATE [Concomitant]
     Active Substance: MOMETASONE FUROATE
     Indication: Rhinitis
     Route: 045
     Dates: start: 20241014
  19. LASIX [Concomitant]
     Active Substance: FUROSEMIDE
     Indication: Hypertension
     Route: 048
     Dates: start: 20240508
  20. LASIX [Concomitant]
     Active Substance: FUROSEMIDE
     Indication: Hypertensive crisis
     Route: 042
     Dates: start: 20240522, end: 20240522
  21. ASPIRIN [Concomitant]
     Active Substance: ASPIRIN
     Route: 048
     Dates: start: 20230310, end: 20240419
  22. CYANOCOBALAMIN\PYRIDOXINE\THIAMINE [Concomitant]
     Active Substance: CYANOCOBALAMIN\PYRIDOXINE\THIAMINE
     Route: 048
     Dates: start: 20230310, end: 20240419
  23. ACETAMINOPHEN [Concomitant]
     Active Substance: ACETAMINOPHEN
     Indication: Pyrexia
     Route: 042
     Dates: start: 20240504, end: 20240506
  24. ACETAMINOPHEN [Concomitant]
     Active Substance: ACETAMINOPHEN
     Indication: Headache
     Route: 042
     Dates: start: 20240426, end: 20240426
  25. DEXAMETHASONE [Concomitant]
     Active Substance: DEXAMETHASONE
     Indication: Eye pain
     Route: 048
     Dates: start: 20240428, end: 20240428
  26. CLONIDINE [Concomitant]
     Active Substance: CLONIDINE
     Indication: Hypertensive crisis
     Route: 042
     Dates: start: 20240522, end: 20240522
  27. NORVASC [Concomitant]
     Active Substance: AMLODIPINE BESYLATE
     Indication: Hypertensive crisis
     Route: 048
     Dates: start: 20240522, end: 20240522
  28. PANTOPRAZOLE [Concomitant]
     Active Substance: PANTOPRAZOLE
     Route: 048
     Dates: start: 20220323, end: 20240508

REACTIONS (5)
  - Skin exfoliation [Recovered/Resolved]
  - Pseudomonas infection [Recovered/Resolved]
  - Nasopharyngitis [Recovered/Resolved]
  - Hypogammaglobulinaemia [Recovered/Resolved]
  - Rhinitis [Recovered/Resolved]

NARRATIVE: CASE EVENT DATE: 20241024
